FAERS Safety Report 8289878-1 (Version None)
Quarter: 2012Q2

REPORT INFORMATION
  Report Type: 
  Country: None (occurrence: None)
  Receive Date: 20120417
  Receipt Date: 20120413
  Transmission Date: 20120825
  Serious: No
  Sender: FDA-Public Use
  Company Number: US-PFIZER INC-2012092905

PATIENT
  Sex: Female
  Weight: 58.957 kg

DRUGS (3)
  1. CYMBALTA [Concomitant]
     Dosage: UNK
  2. SAVELLA [Concomitant]
     Dosage: UNK
  3. LYRICA [Suspect]
     Indication: FIBROMYALGIA
     Dosage: 50 MG, 2X/DAY
     Route: 048
     Dates: start: 20120405, end: 20120407

REACTIONS (3)
  - NAUSEA [None]
  - OROPHARYNGEAL PAIN [None]
  - IRRITABILITY [None]
